FAERS Safety Report 17739727 (Version 3)
Quarter: 2020Q2

REPORT INFORMATION
  Report Type: Spontaneous
  Country: FR (occurrence: FR)
  Receive Date: 20200504
  Receipt Date: 20200619
  Transmission Date: 20200714
  Serious: Yes (Life-Threatening, Hospitalization)
  Sender: FDA-Public Use
  Company Number: FR-ROCHE-2591906

PATIENT
  Age: 24 Year
  Sex: Male

DRUGS (13)
  1. HYPNOVEL [MIDAZOLAM] [Suspect]
     Active Substance: MIDAZOLAM
     Indication: SEDATION
     Route: 065
  2. LAMALINE (ACETAMINOPHEN\CAFFEINE\OPIUM) [Suspect]
     Active Substance: ACETAMINOPHEN\CAFFEINE\OPIUM
     Indication: PRODUCT USED FOR UNKNOWN INDICATION
     Dosage: BETWEEN 3:30 P.M. AND 7:30 P.M., THE PATIENT INGESTED IN TOTAL
     Route: 048
  3. CYMBALTA [Suspect]
     Active Substance: DULOXETINE HYDROCHLORIDE
     Indication: PRODUCT USED FOR UNKNOWN INDICATION
     Dosage: IN THE MORNING
     Route: 048
  4. PARACETAMOL [Suspect]
     Active Substance: ACETAMINOPHEN
     Indication: PRODUCT USED FOR UNKNOWN INDICATION
     Dosage: BETWEEN 3:30 P.M. AND 7:30 P.M., THE PATIENT INGESTED IN TOTAL
     Route: 048
  5. VALIUM [Suspect]
     Active Substance: DIAZEPAM
     Dosage: PROGRESSIVE DECREASE
     Route: 065
  6. ANEXATE [Suspect]
     Active Substance: FLUMAZENIL
     Indication: SEDATION
     Route: 065
  7. VALIUM [Suspect]
     Active Substance: DIAZEPAM
     Indication: PRODUCT USED FOR UNKNOWN INDICATION
     Dosage: BETWEEN 3:30 P.M. AND 7:30 P.M., THE PATIENT INGESTED IN TOTAL: 700 MG DIAZEPAM
     Route: 048
  8. CYMBALTA [Suspect]
     Active Substance: DULOXETINE HYDROCHLORIDE
     Dosage: BETWEEN 3:30 P.M. AND 7:30 P.M., THE PATIENT INGESTED IN TOTAL
     Route: 048
  9. SUFENTANIL [Suspect]
     Active Substance: SUFENTANIL
     Indication: SEDATION
     Route: 065
  10. BISOPROLOL [Suspect]
     Active Substance: BISOPROLOL
     Indication: PRODUCT USED FOR UNKNOWN INDICATION
     Dosage: BETWEEN 3:30 P.M. AND 7:30 P.M., THE PATIENT INGESTED IN TOTAL
     Route: 048
  11. FLECAINIDE [Suspect]
     Active Substance: FLECAINIDE
     Indication: PRODUCT USED FOR UNKNOWN INDICATION
     Dosage: BETWEEN 3:30 P.M. AND 7:30 P.M., THE PATIENT INGESTED IN TOTAL; SLOW-RELEASE
     Route: 048
  12. VALIUM [Suspect]
     Active Substance: DIAZEPAM
     Dosage: WITH CURRENT DOSE OF 10 MG/D
     Route: 065
  13. VOGALENE [Suspect]
     Active Substance: METOPIMAZINE
     Indication: PRODUCT USED FOR UNKNOWN INDICATION
     Dosage: BETWEEN 3:30 P.M. AND 7:30 P.M., THE PATIENT INGESTED IN TOTAL
     Route: 048

REACTIONS (24)
  - Electrocardiogram QT prolonged [Recovered/Resolved]
  - Hypothermia [Recovered/Resolved]
  - Hypotension [Recovered/Resolved]
  - Electrocardiogram PR prolongation [Recovered/Resolved]
  - Hypertonia [Recovered/Resolved]
  - Bundle branch block right [Recovered/Resolved]
  - Suicide attempt [Unknown]
  - Bradycardia [Recovered/Resolved]
  - Ventricular tachycardia [Recovered/Resolved]
  - Respiratory acidosis [Recovered/Resolved]
  - Pupillary disorder [Recovered/Resolved]
  - Electrocardiogram QRS complex prolonged [Recovered/Resolved]
  - Pneumonia aspiration [Unknown]
  - Atrioventricular block [Recovered/Resolved]
  - Ejection fraction decreased [Recovered/Resolved]
  - Tremor [Recovered/Resolved]
  - Agitation [Unknown]
  - Coma [Recovered/Resolved]
  - Reflexes abnormal [Recovered/Resolved]
  - Toxicity to various agents [Unknown]
  - Bezoar [Recovered/Resolved]
  - Breath sounds abnormal [Recovered/Resolved]
  - Intentional overdose [Unknown]
  - Muscle spasticity [Unknown]
